FAERS Safety Report 24238853 (Version 3)
Quarter: 2024Q4

REPORT INFORMATION
  Report Type: Spontaneous
  Country: JP (occurrence: JP)
  Receive Date: 20240822
  Receipt Date: 20241215
  Transmission Date: 20250114
  Serious: Yes (Death, Life-Threatening, Hospitalization, Other)
  Sender: ALEXION PHARMACEUTICALS
  Company Number: 2024A190167

PATIENT
  Age: 82 Year

DRUGS (12)
  1. ONDEXXYA [Suspect]
     Active Substance: ANDEXANET ALFA
     Indication: Haemorrhage
     Dosage: 400 MG IV AT A RATE OF 30 MG/MIN FOLLOWED BY 480 MG IV AT A RATE OF 4 MG/MIN, FREQUENCY: UNK
  2. ONDEXXYA [Suspect]
     Active Substance: ANDEXANET ALFA
     Dosage: 400 MG IV AT A RATE OF 30 MG/MIN FOLLOWED BY 480 MG IV AT A RATE OF 4 MG/MIN, FREQUENCY: UNK
     Route: 042
  3. ONDEXXYA [Suspect]
     Active Substance: ANDEXANET ALFA
     Dosage: 400 MG IV AT A RATE OF 30 MG/MIN FOLLOWED BY 480 MG IV AT A RATE OF 4 MG/MIN, FREQUENCY: UNK
  4. ONDEXXYA [Suspect]
     Active Substance: ANDEXANET ALFA
     Dosage: 400 MG IV AT A RATE OF 30 MG/MIN FOLLOWED BY 480 MG IV AT A RATE OF 4 MG/MIN, FREQUENCY: UNK
     Route: 042
  5. HEPARIN SODIUM [Concomitant]
     Active Substance: HEPARIN SODIUM
     Dosage: DOSE UNKNOWN
     Route: 065
  6. HEPARIN SODIUM [Concomitant]
     Active Substance: HEPARIN SODIUM
     Dosage: DOSE UNKNOWN
     Route: 065
  7. HEPARIN SODIUM [Concomitant]
     Active Substance: HEPARIN SODIUM
     Dosage: DOSE UNKNOWN
     Route: 065
  8. HEPARIN SODIUM [Concomitant]
     Active Substance: HEPARIN SODIUM
     Dosage: DOSE UNKNOWN
     Route: 065
  9. HEPARIN SODIUM [Concomitant]
     Active Substance: HEPARIN SODIUM
     Dosage: DOSE UNKNOWN
     Route: 065
  10. HEPARIN SODIUM [Concomitant]
     Active Substance: HEPARIN SODIUM
     Dosage: DOSE UNKNOWN
     Route: 065
  11. EDOXABAN TOSYLATE [Concomitant]
     Active Substance: EDOXABAN TOSYLATE
     Dosage: DOSE UNKNOWN
     Route: 065
  12. EDOXABAN TOSYLATE [Concomitant]
     Active Substance: EDOXABAN TOSYLATE
     Dosage: DOSE UNKNOWN
     Route: 065

REACTIONS (3)
  - Heparin resistance [Fatal]
  - Acute myocardial infarction [Fatal]
  - Pneumonia [Not Recovered/Not Resolved]
